FAERS Safety Report 9561531 (Version 2)
Quarter: 2013Q4

REPORT INFORMATION
  Report Type: Spontaneous
  Country: JP (occurrence: JP)
  Receive Date: 20130927
  Receipt Date: 20131108
  Transmission Date: 20140711
  Serious: No
  Sender: FDA-Public Use
  Company Number: JP-AMGEN-JPNSP2013067477

PATIENT
  Age: 77 Year
  Sex: Male

DRUGS (5)
  1. RANMARK [Suspect]
     Indication: METASTASES TO BONE
     Dosage: 120 MG, UNK
     Route: 058
     Dates: start: 20130822
  2. RANMARK [Suspect]
     Indication: BONE LESION
  3. ESTRACYT [Concomitant]
     Route: 065
  4. PARIET [Concomitant]
     Route: 065
  5. BAYASPIRIN [Concomitant]
     Route: 065

REACTIONS (1)
  - Blood phosphorus decreased [Not Recovered/Not Resolved]
